FAERS Safety Report 7942923-2 (Version None)
Quarter: 2011Q4

REPORT INFORMATION
  Report Type: 
  Country: None (occurrence: None)
  Receive Date: 20111128
  Receipt Date: 20111116
  Transmission Date: 20120403
  Serious: Yes (Other)
  Sender: FDA-Public Use
  Company Number: US-MERCK-1111USA02343

PATIENT
  Age: 35 Year
  Sex: Female

DRUGS (5)
  1. COREG [Concomitant]
     Route: 065
  2. LISINOPRIL [Concomitant]
     Route: 048
  3. JANUMET [Suspect]
     Indication: TYPE 2 DIABETES MELLITUS
     Route: 048
     Dates: start: 20110201, end: 20110101
  4. XANAX [Concomitant]
     Route: 065
  5. LEVOTHROID [Concomitant]
     Route: 065

REACTIONS (3)
  - SUICIDAL IDEATION [None]
  - IRRITABILITY [None]
  - CRYING [None]
